FAERS Safety Report 6715090-0 (Version None)
Quarter: 2010Q2

REPORT INFORMATION
  Report Type: 
  Country: None (occurrence: None)
  Receive Date: 20100507
  Receipt Date: 20100423
  Transmission Date: 20101027
  Serious: Yes (Other)
  Sender: FDA-Public Use
  Company Number: NL-MYLANLABS-2010S1007224

PATIENT
  Age: 89 Year
  Sex: Male
  Weight: 70 kg

DRUGS (6)
  1. FLUCONAZOLE [Suspect]
     Indication: OESOPHAGEAL CANDIDIASIS
     Dates: start: 20100330, end: 20100406
  2. ADALAT [Suspect]
     Indication: HYPERTENSION
     Dates: start: 20080101, end: 20100406
  3. CASODEX [Concomitant]
     Indication: DRUG USE FOR UNKNOWN INDICATION
     Dosage: 50 MG 1 PER DAG
     Dates: start: 20080101
  4. TAMSULOSINE HCL MERCK [Concomitant]
     Indication: DRUG USE FOR UNKNOWN INDICATION
     Dates: start: 20080101
  5. OMEPRAZOLE [Concomitant]
     Indication: DRUG USE FOR UNKNOWN INDICATION
     Dosage: 1 PER DAG
     Dates: start: 20080101
  6. DICLOFENACUM NATRICUM [Concomitant]
     Indication: DRUG USE FOR UNKNOWN INDICATION
     Dosage: 75MG 1 PER DAG
     Dates: start: 20100201

REACTIONS (2)
  - DRUG INTERACTION [None]
  - OEDEMA [None]
